FAERS Safety Report 12740610 (Version 1)
Quarter: 2016Q3

REPORT INFORMATION
  Report Type: Spontaneous
  Country: GB (occurrence: GB)
  Receive Date: 20160914
  Receipt Date: 20160914
  Transmission Date: 20161109
  Serious: Yes (Other)
  Sender: FDA-Public Use
  Company Number: GB-BAXTER-2016BAX046105

PATIENT
  Age: 35 Year
  Sex: Male

DRUGS (2)
  1. CO-AMOXICLAV [Concomitant]
     Active Substance: AMOXICILLIN\CLAVULANIC ACID
     Indication: ABDOMINAL INFECTION
     Dosage: STARTED 1 WEEK AGO
     Route: 065
     Dates: start: 20160816
  2. METRONIDAZOLE 500 MG / 100 ML INTRAVENOUS INFUSION [Suspect]
     Active Substance: METRONIDAZOLE
     Indication: ABDOMINAL INFECTION
     Dosage: STARTED 2 WEEKS AGO - FINISHED COURSE
     Route: 065
     Dates: start: 20160809

REACTIONS (4)
  - Penile swelling [Unknown]
  - Penile burning sensation [Unknown]
  - Candida infection [Unknown]
  - Disturbance in sexual arousal [Unknown]
